FAERS Safety Report 5169340-5 (Version None)
Quarter: 2006Q4

REPORT INFORMATION
  Report Type: 
  Country: None (occurrence: None)
  Receive Date: 20061201
  Receipt Date: 20061123
  Transmission Date: 20070319
  Serious: Yes (Other)
  Sender: FDA-Public Use
  Company Number: HQWYE482327NOV06

PATIENT
  Age: 84 Year
  Sex: Male

DRUGS (11)
  1. AMIODARONE HCL [Suspect]
     Indication: ATRIAL FIBRILLATION
     Dosage: 100 MG 2X PER 1 AY
     Route: 048
     Dates: start: 20061017, end: 20061025
  2. AMIODARONE HCL [Suspect]
     Indication: CARDIAC FAILURE
     Dosage: 100 MG 2X PER 1 AY
     Route: 048
     Dates: start: 20061017, end: 20061025
  3. WARFARIN SODIUM [Concomitant]
  4. PURSENNID (SENNA LEAF) [Concomitant]
  5. MAGNESIUM OXIDE [Concomitant]
  6. BUFFERIN [Concomitant]
  7. ALLOPURINOL [Concomitant]
  8. PROMAC (POLARPREZINC) [Concomitant]
  9. OMEPRAZOLE [Concomitant]
  10. DIGOXIN [Concomitant]
  11. LASIX [Concomitant]

REACTIONS (2)
  - NEUTROPHIL PERCENTAGE DECREASED [None]
  - WHITE BLOOD CELL COUNT DECREASED [None]
